FAERS Safety Report 9645901 (Version 1)
Quarter: 2013Q4

REPORT INFORMATION
  Report Type: Spontaneous
  Country: US (occurrence: None)
  Receive Date: 20131024
  Receipt Date: 20131024
  Transmission Date: 20140711
  Serious: No
  Sender: FDA-Public Use
  Company Number: None

PATIENT
  Sex: 0

DRUGS (1)
  1. ENBREL 25MG VIALS AMGEN [Suspect]
     Indication: RHEUMATOID ARTHRITIS
     Dosage: 25MG ONE SYRINGE TWICE PER WEEK SUB Q
     Route: 058
     Dates: start: 20130926

REACTIONS (2)
  - Confusional state [None]
  - Amnesia [None]
